FAERS Safety Report 9387674 (Version 2)
Quarter: 2013Q3

REPORT INFORMATION
  Report Type: Spontaneous
  Country: GB (occurrence: None)
  Receive Date: 20130703
  Receipt Date: 20130708
  Transmission Date: 20140515
  Serious: Yes (Hospitalization, Other)
  Sender: FDA-Public Use
  Company Number: AUR-APL-2013-05512

PATIENT
  Age: 84 Year
  Sex: Female

DRUGS (10)
  1. PIOGLITAZONE [Suspect]
     Indication: PRODUCT USED FOR UNKNOWN INDICATION
     Route: 048
     Dates: start: 20110525
  2. ASPIRIN (ACETYLSALICYLIC ACID) [Concomitant]
  3. ATORVASTATIN (ATORVASTATIN) [Concomitant]
  4. BENDROFLUMETHIAZIDE (BENDROFLUMETHIAZIDE) [Concomitant]
  5. BISOPROLOL (BISOPROLOL) [Concomitant]
  6. CO-CODAMOL (PANADEINE CO) [Concomitant]
  7. CYANOCOBALAMINE (CYANOCOBALAMIN) [Concomitant]
  8. GAVISCON ADVANCE (GAVISCON ADVANCE) [Concomitant]
  9. GLICLAZIDE (GLICLAZIDE) [Concomitant]
  10. RAMIPRIL (RAMIPRIL) [Concomitant]

REACTIONS (5)
  - Cardiac failure [None]
  - Atrial fibrillation [None]
  - Pulmonary oedema [None]
  - Left ventricular dysfunction [None]
  - Lower respiratory tract infection [None]
